FAERS Safety Report 20953630 (Version 5)
Quarter: 2023Q4

REPORT INFORMATION
  Report Type: Spontaneous
  Country: JP (occurrence: JP)
  Receive Date: 20220613
  Receipt Date: 20231221
  Transmission Date: 20240110
  Serious: Yes (Hospitalization, Disabling, Other)
  Sender: FDA-Public Use
  Company Number: JP-BRISTOL-MYERS SQUIBB COMPANY-BMS-2022-010704

PATIENT
  Age: 69 Year
  Sex: Male
  Weight: 88 kg

DRUGS (51)
  1. YERVOY [Suspect]
     Active Substance: IPILIMUMAB
     Indication: Non-small cell lung cancer recurrent
     Route: 041
     Dates: start: 20211117, end: 20220108
  2. YERVOY [Suspect]
     Active Substance: IPILIMUMAB
  3. OPDIVO [Suspect]
     Active Substance: NIVOLUMAB
     Indication: Non-small cell lung cancer recurrent
     Route: 041
     Dates: start: 20211117, end: 20220108
  4. OPDIVO [Suspect]
     Active Substance: NIVOLUMAB
  5. PACLITAXEL [Suspect]
     Active Substance: PACLITAXEL
     Indication: Non-small cell lung cancer
     Dates: start: 20211117
  6. PACLITAXEL [Suspect]
     Active Substance: PACLITAXEL
     Indication: Dyspnoea
  7. PACLITAXEL [Suspect]
     Active Substance: PACLITAXEL
     Indication: Non-small cell lung cancer recurrent
  8. AZILSARTAN KAMEDOXOMIL [Concomitant]
     Active Substance: AZILSARTAN KAMEDOXOMIL
     Indication: Hypertension
  9. AZILSARTAN KAMEDOXOMIL [Concomitant]
     Active Substance: AZILSARTAN KAMEDOXOMIL
  10. AZILSARTAN KAMEDOXOMIL [Concomitant]
     Active Substance: AZILSARTAN KAMEDOXOMIL
  11. AZILSARTAN KAMEDOXOMIL [Concomitant]
     Active Substance: AZILSARTAN KAMEDOXOMIL
  12. MEXILETINE HYDROCHLORIDE [Concomitant]
     Active Substance: MEXILETINE HYDROCHLORIDE
     Indication: Product used for unknown indication
     Dosage: 8 HR
  13. MEXILETINE HYDROCHLORIDE [Concomitant]
     Active Substance: MEXILETINE HYDROCHLORIDE
  14. SHAKUYAKUKANZOTO [Concomitant]
     Active Substance: HERBALS
     Indication: Product used for unknown indication
     Dosage: FREQUENCY: Q8H
  15. SHAKUYAKUKANZOTO [Concomitant]
     Active Substance: HERBALS
  16. PREGABALIN [Concomitant]
     Active Substance: PREGABALIN
     Indication: Product used for unknown indication
  17. PREGABALIN [Concomitant]
     Active Substance: PREGABALIN
  18. PREGABALIN [Concomitant]
     Active Substance: PREGABALIN
  19. PREGABALIN [Concomitant]
     Active Substance: PREGABALIN
  20. PREGABALIN [Concomitant]
     Active Substance: PREGABALIN
  21. PREGABALIN [Concomitant]
     Active Substance: PREGABALIN
     Dosage: FREQUENCY: Q12 H
  22. VONOPRAZAN FUMARATE [Concomitant]
     Active Substance: VONOPRAZAN FUMARATE
     Indication: Product used for unknown indication
  23. VONOPRAZAN FUMARATE [Concomitant]
     Active Substance: VONOPRAZAN FUMARATE
  24. VONOPRAZAN FUMARATE [Concomitant]
     Active Substance: VONOPRAZAN FUMARATE
  25. VONOPRAZAN FUMARATE [Concomitant]
     Active Substance: VONOPRAZAN FUMARATE
  26. MAGNOZONE [MAGNESIUM OXIDE] [Concomitant]
     Indication: Product used for unknown indication
     Dosage: FREQUCNY: 8 H
  27. MAGNOZONE [MAGNESIUM OXIDE] [Concomitant]
  28. CALONAL [Concomitant]
     Active Substance: ACETAMINOPHEN
     Indication: Product used for unknown indication
     Dosage: FREQUENCY: 8HR
  29. CALONAL [Concomitant]
     Active Substance: ACETAMINOPHEN
  30. CALONAL [Concomitant]
     Active Substance: ACETAMINOPHEN
  31. CALONAL [Concomitant]
     Active Substance: ACETAMINOPHEN
  32. NAFTOPIDIL [Concomitant]
     Active Substance: NAFTOPIDIL
     Indication: Product used for unknown indication
  33. NAFTOPIDIL [Concomitant]
     Active Substance: NAFTOPIDIL
  34. NIFEDIPINE CR SANWA [Concomitant]
     Indication: Product used for unknown indication
  35. SALAZAC [CAFFEINE;PARACETAMOL;SALICYLAMIDE] [Concomitant]
     Indication: Product used for unknown indication
  36. SALAZAC [CAFFEINE;PARACETAMOL;SALICYLAMIDE] [Concomitant]
  37. MEXILETINE [Concomitant]
     Active Substance: MEXILETINE
     Indication: Tachyarrhythmia
     Dosage: FREQUENCY: Q8H
  38. MEXILETINE [Concomitant]
     Active Substance: MEXILETINE
  39. LYRICA CR [Concomitant]
     Active Substance: PREGABALIN
     Indication: Product used for unknown indication
  40. LYRICA CR [Concomitant]
     Active Substance: PREGABALIN
  41. LYRICA CR [Concomitant]
     Active Substance: PREGABALIN
  42. LYRICA CR [Concomitant]
     Active Substance: PREGABALIN
  43. NIFEDIPINE [Concomitant]
     Active Substance: NIFEDIPINE
     Indication: Hypertension
     Dosage: FREQUENYC: EVERY DAY
  44. NIFEDIPINE [Concomitant]
     Active Substance: NIFEDIPINE
  45. ALUMINUM MAGNESIUM OXIDE [Concomitant]
     Indication: Product used for unknown indication
  46. ALUMINUM MAGNESIUM OXIDE [Concomitant]
  47. NAFTOPIDIL [Concomitant]
     Active Substance: NAFTOPIDIL
     Indication: Product used for unknown indication
  48. NAFTOPIDIL [Concomitant]
     Active Substance: NAFTOPIDIL
  49. SALAZAC [CAFFEINE;PARACETAMOL;SALICYLAMIDE] [Concomitant]
     Indication: Product used for unknown indication
  50. CARBOPLATIN [Concomitant]
     Active Substance: CARBOPLATIN
     Indication: Non-small cell lung cancer recurrent
     Dates: start: 20211117
  51. CARBOPLATIN [Concomitant]
     Active Substance: CARBOPLATIN

REACTIONS (7)
  - Decreased appetite [Recovering/Resolving]
  - Wheezing [Recovering/Resolving]
  - Lung opacity [Recovering/Resolving]
  - Diarrhoea [Recovering/Resolving]
  - Adrenocorticotropic hormone deficiency [Recovering/Resolving]
  - Pyrexia [Recovering/Resolving]
  - Immune-mediated enterocolitis [Unknown]

NARRATIVE: CASE EVENT DATE: 20220115
